FAERS Safety Report 9791358 (Version 1)
Quarter: 2014Q1

REPORT INFORMATION
  Report Type: Spontaneous
  Country: US (occurrence: US)
  Receive Date: 20140101
  Receipt Date: 20140101
  Transmission Date: 20141002
  Serious: Yes (Other)
  Sender: FDA-Public Use
  Company Number: US-ASTRAZENECA-2013SE94461

PATIENT
  Age: 70 Year
  Sex: Female
  Weight: 77.6 kg

DRUGS (15)
  1. ONGLYZA [Suspect]
     Indication: DIABETES MELLITUS
     Route: 048
     Dates: start: 2012
  2. NEXIUM [Suspect]
     Indication: VARICES OESOPHAGEAL
     Route: 048
     Dates: start: 1998
  3. ATENOLOL [Suspect]
     Indication: BLOOD PRESSURE ABNORMAL
     Route: 048
     Dates: start: 2003
  4. LISINOPRIL (NON AZ PRODUCT) [Suspect]
     Indication: BLOOD PRESSURE ABNORMAL
     Route: 048
     Dates: start: 2009
  5. LEVOTHYROXINE [Concomitant]
     Indication: HYPOTHYROIDISM
     Route: 048
     Dates: start: 2008
  6. ATORVASTATIN [Concomitant]
     Indication: BLOOD CHOLESTEROL ABNORMAL
     Route: 048
     Dates: start: 2003
  7. PROZAC [Concomitant]
     Indication: ANXIETY
     Route: 048
     Dates: start: 2003
  8. GLYBURIDE [Concomitant]
     Indication: DIABETES MELLITUS
     Route: 048
     Dates: start: 2008
  9. LORAZEPAM [Concomitant]
     Indication: SLEEP DISORDER
     Route: 048
     Dates: start: 2003
  10. LORAZEPAM [Concomitant]
     Indication: ANXIETY
     Route: 048
     Dates: start: 2003
  11. ZOLPIDEM [Concomitant]
     Indication: SLEEP DISORDER
     Route: 048
     Dates: start: 2012
  12. NADOLOL [Concomitant]
     Indication: LIVER DISORDER
     Route: 048
     Dates: start: 2012
  13. LANTUS [Concomitant]
     Indication: DIABETES MELLITUS
     Route: 058
     Dates: start: 2011
  14. NITROSTAT [Concomitant]
     Indication: CHEST PAIN
     Dates: start: 2010
  15. APAP + OXYCODONE [Concomitant]
     Indication: PAIN
     Dosage: 1DF: 10/500 UNITS NOS
     Route: 048
     Dates: start: 2012

REACTIONS (1)
  - Hepatic cirrhosis [Unknown]
